FAERS Safety Report 4371169-2 (Version None)
Quarter: 2004Q2

REPORT INFORMATION
  Report Type: 
  Country: None (occurrence: None)
  Receive Date: 20040604
  Receipt Date: 20040505
  Transmission Date: 20050107
  Serious: Yes (Hospitalization)
  Sender: FDA-Public Use
  Company Number: US-ROCHE-367055

PATIENT
  Age: 51 Year
  Sex: Female
  Weight: 55.8 kg

DRUGS (1)
  1. PEGASYS [Suspect]
     Route: 058
     Dates: start: 20030402, end: 20040327

REACTIONS (2)
  - CHOLECYSTECTOMY [None]
  - PANCREATITIS [None]
